FAERS Safety Report 5660325-9 (Version None)
Quarter: 2008Q1

REPORT INFORMATION
  Report Type: 
  Country: None (occurrence: None)
  Receive Date: 20080311
  Receipt Date: 20070919
  Transmission Date: 20080703
  Serious: No
  Sender: FDA-Public Use
  Company Number: US-BAYER-200713054BCC

PATIENT
  Age: 90 Year
  Sex: Female
  Weight: 65 kg

DRUGS (7)
  1. ALEVE [Suspect]
     Indication: PAIN
     Dosage: AS USED: 440 MG  UNIT DOSE: 220 MG
     Route: 048
     Dates: start: 20070915
  2. TIMOPTIC [Concomitant]
  3. ZESTRIL [Concomitant]
  4. NORVASC [Concomitant]
  5. TOPROL [Concomitant]
  6. HYDROCHLOROTHIAZIDE [Concomitant]
  7. METHAZOLAMIDE [Concomitant]

REACTIONS (1)
  - DIARRHOEA [None]
